FAERS Safety Report 13261164 (Version 1)
Quarter: 2017Q1

REPORT INFORMATION
  Report Type: Spontaneous
  Country: US (occurrence: US)
  Receive Date: 20170222
  Receipt Date: 20170222
  Transmission Date: 20170428
  Serious: Yes (Other)
  Sender: FDA-Public Use
  Company Number: PHHY2017US014413

PATIENT
  Age: 80 Year
  Sex: Female

DRUGS (3)
  1. RANIBIZUMAB [Suspect]
     Active Substance: RANIBIZUMAB
     Indication: NEOVASCULAR AGE-RELATED MACULAR DEGENERATION
     Route: 031
  2. MOXIFLOXACIN. [Suspect]
     Active Substance: MOXIFLOXACIN
     Indication: STAPHYLOCOCCAL INFECTION
  3. MOXIFLOXACIN. [Suspect]
     Active Substance: MOXIFLOXACIN
     Indication: ENDOPHTHALMITIS
     Route: 047

REACTIONS (11)
  - Staphylococcal infection [Recovered/Resolved]
  - Retinal perivascular sheathing [Unknown]
  - Visual acuity reduced [Recovering/Resolving]
  - Vitreous floaters [Unknown]
  - Retinal vasculitis [Recovered/Resolved]
  - Retinal haemorrhage [Unknown]
  - Endophthalmitis [Recovered/Resolved]
  - Vitreous degeneration [Unknown]
  - Product use issue [Unknown]
  - Eye inflammation [Recovering/Resolving]
  - Retinal exudates [Unknown]
